FAERS Safety Report 5649472-5 (Version None)
Quarter: 2008Q1

REPORT INFORMATION
  Report Type: 
  Country: None (occurrence: None)
  Receive Date: 20080304
  Receipt Date: 20080225
  Transmission Date: 20080703
  Serious: Yes (Disabling, Other)
  Sender: FDA-Public Use
  Company Number: AR-ROCHE-549456

PATIENT
  Age: 59 Year
  Sex: Female

DRUGS (3)
  1. XENICAL [Suspect]
     Route: 048
     Dates: start: 20060101, end: 20080225
  2. CRESTOR [Concomitant]
     Dosage: DRUG REPORTED AS CRETOR.
  3. ATENOLOL [Concomitant]

REACTIONS (5)
  - ABDOMINAL DISCOMFORT [None]
  - ANAL ABSCESS [None]
  - ANAL FISTULA [None]
  - HAEMORRHOIDS [None]
  - INTESTINAL POLYP [None]
